FAERS Safety Report 24530469 (Version 1)
Quarter: 2024Q4

REPORT INFORMATION
  Report Type: Spontaneous
  Country: AU (occurrence: AU)
  Receive Date: 20241021
  Receipt Date: 20241021
  Transmission Date: 20250115
  Serious: Yes (Hospitalization, Other)
  Sender: MYLAN
  Company Number: AU-MYLANLABS-2024M1081819

PATIENT
  Sex: Male

DRUGS (1)
  1. CLOZARIL [Suspect]
     Active Substance: CLOZAPINE
     Indication: Schizophrenia
     Dosage: 150 MILLIGRAM
     Route: 048
     Dates: start: 20080424

REACTIONS (5)
  - Abscess [Unknown]
  - Sepsis [Unknown]
  - Infection [Unknown]
  - Neutropenia [Recovered/Resolved]
  - Psychotic disorder [Unknown]
